FAERS Safety Report 6557175-8 (Version None)
Quarter: 2010Q1

REPORT INFORMATION
  Report Type: 
  Country: None (occurrence: None)
  Receive Date: 20100128
  Receipt Date: 20100119
  Transmission Date: 20100710
  Serious: Yes (Other)
  Sender: FDA-Public Use
  Company Number: US-GILEAD-2009-0023344

PATIENT
  Age: 31 Year
  Sex: Female
  Weight: 0.168 kg

DRUGS (4)
  1. VIREAD [Suspect]
     Indication: HIV INFECTION
     Route: 048
     Dates: start: 20071101
  2. NORVIR [Concomitant]
     Indication: HIV INFECTION
     Dates: start: 20071101
  3. REYATAZ [Concomitant]
     Indication: HIV INFECTION
     Dates: start: 20071101
  4. EPZICOM [Concomitant]
     Indication: HIV INFECTION
     Dates: start: 20071101

REACTIONS (2)
  - ABORTION INFECTED [None]
  - PREMATURE RUPTURE OF MEMBRANES [None]
